FAERS Safety Report 12200602 (Version 1)
Quarter: 2016Q1

REPORT INFORMATION
  Report Type: Spontaneous
  Country: US (occurrence: US)
  Receive Date: 20160322
  Receipt Date: 20160322
  Transmission Date: 20160526
  Serious: No
  Sender: FDA-Public Use
  Company Number: US-SA-2015SA082892

PATIENT
  Sex: Male

DRUGS (1)
  1. LEUKINE [Suspect]
     Active Substance: SARGRAMOSTIM
     Dosage: DOSE: THE DOSES VARIED: 250 MCG, SOME 300 MCG OR 500 MCG
     Route: 065
     Dates: start: 201505

REACTIONS (8)
  - Influenza like illness [Unknown]
  - Injection site nodule [Unknown]
  - Injection site pain [Unknown]
  - Erythema [Unknown]
  - Burning sensation [Unknown]
  - Injection site swelling [Unknown]
  - Pruritus [Unknown]
  - Myalgia [Unknown]

NARRATIVE: CASE EVENT DATE: 2015
